FAERS Safety Report 7736492-X (Version None)
Quarter: 2011Q3

REPORT INFORMATION
  Report Type: 
  Country: None (occurrence: None)
  Receive Date: 20110908
  Receipt Date: 20110829
  Transmission Date: 20111222
  Serious: Yes (Other)
  Sender: FDA-Public Use
  Company Number: US-AMGEN-USASP2011042696

PATIENT
  Age: 36 Year
  Sex: Female

DRUGS (2)
  1. ENBREL [Suspect]
     Indication: RHEUMATOID ARTHRITIS
     Dosage: 50 MG, QWK
     Dates: start: 20100801
  2. TREXALL [Concomitant]
     Dosage: 5 MG, UNK
     Dates: start: 20070101

REACTIONS (14)
  - APHTHOUS STOMATITIS [None]
  - INJECTION SITE HAEMORRHAGE [None]
  - UPPER RESPIRATORY TRACT INFECTION [None]
  - DENTAL CARIES [None]
  - TOOTH ABSCESS [None]
  - ANAEMIA [None]
  - WHITE BLOOD CELL COUNT DECREASED [None]
  - ARTHRALGIA [None]
  - MOUTH HAEMORRHAGE [None]
  - DRUG INEFFECTIVE [None]
  - INJECTION SITE PAIN [None]
  - OBSESSIVE-COMPULSIVE DISORDER [None]
  - TOOTH INFECTION [None]
  - BRONCHITIS [None]
